FAERS Safety Report 20326553 (Version 1)
Quarter: 2022Q1

REPORT INFORMATION
  Report Type: Spontaneous
  Country: CH (occurrence: CH)
  Receive Date: 20220112
  Receipt Date: 20220112
  Transmission Date: 20220423
  Serious: Yes (Other)
  Sender: FDA-Public Use
  Company Number: CH-NOVARTISPH-NVSC2022CH003785

PATIENT
  Age: 50 Year
  Sex: Male

DRUGS (10)
  1. FOCALIN XR [Suspect]
     Active Substance: DEXMETHYLPHENIDATE HYDROCHLORIDE
     Indication: Attention deficit hyperactivity disorder
     Dosage: 20 MG
     Route: 065
  2. FOCALIN XR [Suspect]
     Active Substance: DEXMETHYLPHENIDATE HYDROCHLORIDE
     Dosage: 60 MG, QD
     Route: 065
  3. FOCALIN XR [Suspect]
     Active Substance: DEXMETHYLPHENIDATE HYDROCHLORIDE
     Dosage: 10 DOSAGE FORM, QD (10 TABLETS OF 20 MG PER DAY, 300 TABLETS PER MONTH)
     Route: 045
  4. FOCALIN XR [Suspect]
     Active Substance: DEXMETHYLPHENIDATE HYDROCHLORIDE
     Dosage: 8 DOSAGE FORM, QD (8 TABLETS A DAY)
     Route: 045
  5. FOCALIN XR [Suspect]
     Active Substance: DEXMETHYLPHENIDATE HYDROCHLORIDE
     Dosage: 3 DOSAGE FORM, QD (3 TABLETS A DAY)
     Route: 045
  6. CONCERTA [Concomitant]
     Active Substance: METHYLPHENIDATE HYDROCHLORIDE
     Indication: Attention deficit hyperactivity disorder
     Dosage: 72 MG, QD
     Route: 048
  7. OXYCONTIN [Concomitant]
     Active Substance: OXYCODONE HYDROCHLORIDE
     Indication: Back pain
     Dosage: 30 MG, QD (3 TIMES 10 MG)
     Route: 065
  8. VIMOVO [Concomitant]
     Active Substance: ESOMEPRAZOLE MAGNESIUM\NAPROXEN
     Indication: Back pain
     Dosage: 1 DOSAGE FORM, BID (ONE TABLET IN MORNING AND 1 IN EVENING)
     Route: 065
  9. WELLBUTRIN [Concomitant]
     Active Substance: BUPROPION HYDROCHLORIDE
     Indication: Back pain
     Dosage: 300 MG, QD (1-0-0)
     Route: 065
  10. ZOLPIDEM [Concomitant]
     Active Substance: ZOLPIDEM TARTRATE
     Indication: Back pain
     Dosage: 12.5 MG, BID
     Route: 045

REACTIONS (3)
  - Intentional product misuse [Unknown]
  - Drug dependence [Unknown]
  - Chronic gastritis [Unknown]
